FAERS Safety Report 12633177 (Version 2)
Quarter: 2016Q3

REPORT INFORMATION
  Report Type: Spontaneous
  Country: US (occurrence: US)
  Receive Date: 20160808
  Receipt Date: 20160808
  Transmission Date: 20161109
  Serious: No
  Sender: FDA-Public Use
  Company Number: US-BEH-2016058731

PATIENT
  Age: 26 Year
  Sex: Male
  Weight: 54 kg

DRUGS (14)
  1. HIZENTRA [Suspect]
     Active Substance: HUMAN IMMUNOGLOBULIN G
     Indication: IMMUNODEFICIENCY COMMON VARIABLE
     Route: 058
  2. ALBUTEROL. [Concomitant]
     Active Substance: ALBUTEROL
  3. DUONEB [Concomitant]
     Active Substance: ALBUTEROL SULFATE\IPRATROPIUM BROMIDE
  4. SINGULAIR [Concomitant]
     Active Substance: MONTELUKAST SODIUM
  5. LEVAQUIN [Concomitant]
     Active Substance: LEVOFLOXACIN
  6. EPIPEN [Concomitant]
     Active Substance: EPINEPHRINE
  7. LIDOCAINE/PRILOCAINE [Concomitant]
     Active Substance: LIDOCAINE\PRILOCAINE
  8. L-M-X [Concomitant]
  9. NEURONTIN [Concomitant]
     Active Substance: GABAPENTIN
  10. OXYGEN. [Concomitant]
     Active Substance: OXYGEN
  11. IBUPROFEN. [Concomitant]
     Active Substance: IBUPROFEN
  12. BANZEL [Concomitant]
     Active Substance: RUFINAMIDE
  13. DIPHENHYDRAMINE. [Concomitant]
     Active Substance: DIPHENHYDRAMINE
  14. PREDNISONE. [Concomitant]
     Active Substance: PREDNISONE

REACTIONS (1)
  - Sinusitis [Unknown]

NARRATIVE: CASE EVENT DATE: 201512
